FAERS Safety Report 7209004-7 (Version None)
Quarter: 2011Q1

REPORT INFORMATION
  Report Type: 
  Country: None (occurrence: None)
  Receive Date: 20110104
  Receipt Date: 20101228
  Transmission Date: 20110831
  Serious: Yes (Hospitalization, Other)
  Sender: FDA-Public Use
  Company Number: IN-ROXANE LABORATORIES, INC.-2010-RO-01730RO

PATIENT
  Age: 62 Year
  Sex: Male

DRUGS (5)
  1. DOMPERIDONE/ACETAMINOPHEN [Suspect]
  2. ZOLPIDEM [Suspect]
     Indication: INSOMNIA
     Dosage: 10 MG
  3. ZOLPIDEM [Suspect]
     Dosage: 40 MG
  4. ESCITALOPRAM [Suspect]
     Dosage: 10 MG
  5. ZOLPIDEM [Suspect]

REACTIONS (2)
  - DELIRIUM [None]
  - DRUG DEPENDENCE [None]
